FAERS Safety Report 8018308-X (Version None)
Quarter: 2012Q1

REPORT INFORMATION
  Report Type: 
  Country: None (occurrence: None)
  Receive Date: 20120103
  Receipt Date: 20111228
  Transmission Date: 20120608
  Serious: Yes (Other)
  Sender: FDA-Public Use
  Company Number: US-JNJFOC-20111201969

PATIENT
  Age: 40 Year
  Sex: Female
  Weight: 71.67 kg

DRUGS (3)
  1. NEOSPORIN [Suspect]
     Indication: BLISTER
     Dosage: ^JUST A LITTLE BIT^
     Route: 061
     Dates: start: 20110917, end: 20111111
  2. NEOSPORIN [Suspect]
     Indication: SCRATCH
     Dosage: ^JUST A LITTLE BIT^
     Route: 061
     Dates: start: 20110917, end: 20111111
  3. NEOSPORIN [Suspect]
     Indication: LACERATION
     Dosage: ^JUST A LITTLE BIT^
     Route: 061
     Dates: start: 20110917, end: 20111111

REACTIONS (2)
  - HYPERSENSITIVITY [None]
  - PRODUCT QUALITY ISSUE [None]
